FAERS Safety Report 7528559-6 (Version None)
Quarter: 2011Q2

REPORT INFORMATION
  Report Type: 
  Country: None (occurrence: None)
  Receive Date: 20110607
  Receipt Date: 20040430
  Transmission Date: 20111010
  Serious: Yes (Death)
  Sender: FDA-Public Use
  Company Number: PHHO2004CA05910

PATIENT
  Sex: Male

DRUGS (5)
  1. CLOZARIL [Suspect]
     Indication: SCHIZOPHRENIA
     Dosage: 150 MG, DAILY
     Route: 048
     Dates: start: 20010219
  2. PAXIL [Concomitant]
  3. CLONAZEPAM [Concomitant]
  4. SENOKOT [Concomitant]
  5. PERCOCET [Concomitant]

REACTIONS (1)
  - DEATH [None]
